FAERS Safety Report 5303682-5 (Version None)
Quarter: 2007Q2

REPORT INFORMATION
  Report Type: 
  Country: None (occurrence: None)
  Receive Date: 20070420
  Receipt Date: 20070411
  Transmission Date: 20071010
  Serious: Yes (Other)
  Sender: FDA-Public Use
  Company Number: FR-PFIZER INC-2007002381

PATIENT
  Sex: Male
  Weight: 80 kg

DRUGS (3)
  1. LYRICA [Suspect]
     Indication: NEURALGIA
     Route: 048
  2. VEINAMITOL [Concomitant]
     Indication: VENOUS INSUFFICIENCY
  3. ZESTORETIC [Concomitant]
     Indication: HYPERTENSION

REACTIONS (3)
  - ATRIOVENTRICULAR BLOCK SECOND DEGREE [None]
  - EXTRASYSTOLES [None]
  - VERTIGO [None]
